FAERS Safety Report 6253705-4 (Version None)
Quarter: 2009Q2

REPORT INFORMATION
  Report Type: 
  Country: None (occurrence: None)
  Receive Date: 20090630
  Receipt Date: 20090518
  Transmission Date: 20091009
  Serious: Yes (Other)
  Sender: FDA-Public Use
  Company Number: 2008-183726-NL

PATIENT
  Age: 25 Year
  Sex: Female
  Weight: 86.2 kg

DRUGS (3)
  1. NUVARING [Suspect]
     Indication: CONTRACEPTION
     Dates: start: 20050506, end: 20050601
  2. PROZAC [Concomitant]
  3. GLUCOPHAGE [Concomitant]

REACTIONS (7)
  - BLOOD HUMAN CHORIONIC GONADOTROPIN POSITIVE [None]
  - CONSTIPATION [None]
  - DEEP VEIN THROMBOSIS [None]
  - DEPRESSION [None]
  - DYSPNOEA [None]
  - PAIN IN EXTREMITY [None]
  - URINARY TRACT INFECTION [None]
